FAERS Safety Report 9719511 (Version 1)
Quarter: 2013Q4

REPORT INFORMATION
  Report Type: Spontaneous
  Country: US (occurrence: US)
  Receive Date: 20131128
  Receipt Date: 20131128
  Transmission Date: 20140711
  Serious: No
  Sender: FDA-Public Use
  Company Number: US-BIOGENIDEC-2013BI112681

PATIENT
  Age: 40 Year
  Sex: Female

DRUGS (3)
  1. TYSABRI [Suspect]
     Indication: MULTIPLE SCLEROSIS
     Route: 042
     Dates: start: 20130821
  2. TYLENOL AS PRE-MEDICATION TO PREVENT [Concomitant]
     Indication: HYPERSENSITIVITY
  3. BENADRYL (50 MG, PO) AS PRE-MEDICATION TO PREVENT [Concomitant]
     Indication: COUGH

REACTIONS (3)
  - Cough [Recovered/Resolved]
  - Hypersensitivity [Recovered/Resolved]
  - Fatigue [Recovered/Resolved]
